FAERS Safety Report 7417009-6 (Version None)
Quarter: 2011Q2

REPORT INFORMATION
  Report Type: 
  Country: None (occurrence: None)
  Receive Date: 20110406
  Receipt Date: 20110321
  Transmission Date: 20111010
  Serious: Yes (Hospitalization)
  Sender: FDA-Public Use
  Company Number: 1000019629

PATIENT
  Age: 54 Year
  Sex: Female
  Weight: 59 kg

DRUGS (8)
  1. ESCITALOPRAM OXALATE [Suspect]
     Dosage: 10 MG (10 MG,1 IN 1 D),ORAL
     Route: 048
     Dates: end: 20110204
  2. BACTRIM [Suspect]
     Dosage: 4800 MG/ 960 MG (2 DOSAGE FORMS,3 IN 1 D),ORAL
     Route: 048
     Dates: start: 20110124, end: 20110203
  3. LOVENOX (ENOXAPARIN SODIUM) (ENOXAPARIN SODIUM) [Concomitant]
  4. BACTRIM [Suspect]
     Dosage: 2000 MG/ 400 MG,INTRAVENOUS (NOT OTHERWISE SPECIFIED)
     Route: 042
  5. FUNGIZONE (AMPHOTERICIN B) (AMPHOTERICIN B) [Concomitant]
  6. GYNO-PEVARYL (ECONAZOLE NITRATE) (CAPSULES) (ECONAZOLE NITRATE) [Concomitant]
  7. LEDERFOLINE (CALCIUM FOLINATE) (CALCIUM FOLINATE) [Concomitant]
  8. LEVOTHYROXINE SODIUM (LEVOTHYROXINE SODIUM) (LEVOTHYROXINE SODIUM) [Concomitant]

REACTIONS (12)
  - PYREXIA [None]
  - HEPATOCELLULAR INJURY [None]
  - PARVOVIRUS B19 TEST POSITIVE [None]
  - HYPONATRAEMIA [None]
  - HEPATIC STEATOSIS [None]
  - PNEUMOCYSTIS JIROVECI PNEUMONIA [None]
  - OROPHARYNGEAL CANDIDIASIS [None]
  - CYTOLYTIC HEPATITIS [None]
  - ANTI-HBC ANTIBODY [None]
  - HEPATOMEGALY [None]
  - HIV INFECTION [None]
  - CONDITION AGGRAVATED [None]
